FAERS Safety Report 10057402 (Version 1)
Quarter: 2014Q2

REPORT INFORMATION
  Report Type: Spontaneous
  Country: US (occurrence: US)
  Receive Date: 20140403
  Receipt Date: 20140403
  Transmission Date: 20141212
  Serious: No
  Sender: FDA-Public Use
  Company Number: US-009507513-1403USA012681

PATIENT
  Age: 31 Year
  Sex: Female

DRUGS (1)
  1. DULERA [Suspect]
     Dosage: 1 DF, BID
     Route: 055
     Dates: start: 201402, end: 2014

REACTIONS (3)
  - Panic attack [Recovering/Resolving]
  - Headache [Recovering/Resolving]
  - Underdose [Unknown]
